FAERS Safety Report 21316058 (Version 3)
Quarter: 2022Q3

REPORT INFORMATION
  Report Type: Spontaneous
  Country: BR (occurrence: BR)
  Receive Date: 20220910
  Receipt Date: 20220922
  Transmission Date: 20221026
  Serious: Yes (Other)
  Sender: FDA-Public Use
  Company Number: BR-BAYER-2022A124899

PATIENT
  Sex: Female

DRUGS (2)
  1. XARELTO [Suspect]
     Active Substance: RIVAROXABAN
     Indication: Venous thrombosis
     Route: 048
     Dates: start: 202003
  2. ANASTROZOLE [Concomitant]
     Active Substance: ANASTROZOLE
     Indication: Neoplasm malignant

REACTIONS (10)
  - Arrhythmia [Not Recovered/Not Resolved]
  - Incorrect product administration duration [Unknown]
  - Inability to afford medication [Unknown]
  - Confusional state [Unknown]
  - Dry skin [Unknown]
  - Peripheral swelling [Unknown]
  - Oedema genital [Unknown]
  - Limb injury [Unknown]
  - Limb mass [Unknown]
  - Visual impairment [Unknown]
